FAERS Safety Report 9203566 (Version 4)
Quarter: 2013Q2

REPORT INFORMATION
  Report Type: Spontaneous
  Country: JP (occurrence: JP)
  Receive Date: 20130402
  Receipt Date: 20130521
  Transmission Date: 20140414
  Serious: Yes (Death, Other)
  Sender: FDA-Public Use
  Company Number: PHHY2013JP030316

PATIENT
  Age: 76 Year
  Sex: Male

DRUGS (14)
  1. EXELON PATCH [Suspect]
     Indication: DEMENTIA ALZHEIMER^S TYPE
     Dosage: 4.5 MG, DAILY
     Route: 062
     Dates: start: 20121202, end: 20121229
  2. EXELON PATCH [Suspect]
     Dosage: 9 MG, DAILY
     Route: 062
     Dates: start: 20121230, end: 20130313
  3. EXELON PATCH [Suspect]
     Dosage: 18 MG, DAILY
     Route: 062
     Dates: start: 20130314, end: 20130320
  4. EXELON PATCH [Suspect]
     Dosage: 9 MG, DAILY
     Route: 062
     Dates: start: 20130321
  5. LONASEN [Concomitant]
     Dosage: 4 MG, UNK
     Route: 048
     Dates: start: 20130311
  6. TENORMIN [Concomitant]
     Dosage: 50 MG, UNK
     Route: 048
     Dates: start: 20130311
  7. HYDERGINE//DIHYDROERGOTOXINE MESILATE [Concomitant]
     Dosage: 2 MG, UNK
     Route: 048
     Dates: start: 20130311
  8. TAKEPRON [Concomitant]
     Dosage: 15 MG, UNK
     Route: 048
     Dates: start: 20130311
  9. FOLIAMIN [Concomitant]
     Dosage: 2 DF, UNK
     Route: 048
     Dates: start: 20130311
  10. VITANEURIN [Concomitant]
     Dosage: 2 DF, UNK
     Route: 048
     Dates: start: 20130311
  11. CINAL [Concomitant]
     Dosage: 3 DF, UNK
     Route: 048
     Dates: start: 20130311
  12. MONILAC [Concomitant]
     Dosage: 3 DF, UNK
     Route: 048
     Dates: start: 20130311
  13. PANTOSIN [Concomitant]
     Dosage: 1 G, UNK
     Route: 048
     Dates: start: 20130311
  14. MAGNESIUM OXIDE [Concomitant]
     Dosage: 2 G, UNK
     Route: 048
     Dates: start: 20130311

REACTIONS (7)
  - Parkinson^s disease [Fatal]
  - Sudden death [Fatal]
  - Asthenia [Fatal]
  - Pneumonia [Unknown]
  - Dysphagia [Unknown]
  - Incorrect dose administered [Unknown]
  - Drug dispensing error [Unknown]
